FAERS Safety Report 18355844 (Version 1)
Quarter: 2020Q4

REPORT INFORMATION
  Report Type: Spontaneous
  Country: US (occurrence: US)
  Receive Date: 20201007
  Receipt Date: 20201007
  Transmission Date: 20210114
  Serious: Yes (Hospitalization)
  Sender: FDA-Public Use
  Company Number: None

PATIENT
  Age: 16 Year
  Sex: Male

DRUGS (7)
  1. NAPROXEN. [Concomitant]
     Active Substance: NAPROXEN
  2. RISPERIDONE. [Concomitant]
     Active Substance: RISPERIDONE
  3. SERTRALINE [Concomitant]
     Active Substance: SERTRALINE HYDROCHLORIDE
  4. ILARIS [Suspect]
     Active Substance: CANAKINUMAB
     Indication: ASTHMA
     Dosage: ?          OTHER FREQUENCY:EVERY 28 DAYS;?
     Route: 058
  5. BACLOFEN. [Concomitant]
     Active Substance: BACLOFEN
  6. FLUTICASONE. [Concomitant]
     Active Substance: FLUTICASONE
  7. CETIRIZINE [Concomitant]
     Active Substance: CETIRIZINE HYDROCHLORIDE

REACTIONS (1)
  - Near death experience [None]

NARRATIVE: CASE EVENT DATE: 20201006
